FAERS Safety Report 25130010 (Version 1)
Quarter: 2025Q1

REPORT INFORMATION
  Report Type: Spontaneous
  Country: IN (occurrence: IN)
  Receive Date: 20250327
  Receipt Date: 20250327
  Transmission Date: 20250409
  Serious: Yes (Death, Hospitalization, Other)
  Sender: AMNEAL
  Company Number: IN-AMNEAL PHARMACEUTICALS-2025-AMRX-01086

PATIENT
  Age: 62 Year
  Sex: Male

DRUGS (3)
  1. METHOTREXATE [Suspect]
     Active Substance: METHOTREXATE
     Indication: Rheumatoid arthritis
     Dosage: 7.5 MILLIGRAM, 2 /DAY
     Route: 065
  2. PREDNISOLONE [Concomitant]
     Active Substance: PREDNISOLONE
     Indication: Rheumatoid arthritis
     Dosage: 10 MILLIGRAM, 1 /DAY
     Route: 065
  3. ACECLOFENAC [Concomitant]
     Active Substance: ACECLOFENAC
     Indication: Rheumatoid arthritis
     Dosage: UNK, 2 /DAY
     Route: 065

REACTIONS (6)
  - Multiple organ dysfunction syndrome [Fatal]
  - Cardiac arrest [Fatal]
  - Neutropenic sepsis [Fatal]
  - Erythema [Unknown]
  - Mucosal inflammation [Unknown]
  - Overdose [Unknown]
